FAERS Safety Report 18033740 (Version 1)
Quarter: 2020Q3

REPORT INFORMATION
  Report Type: Report from Study
  Country: None (occurrence: US)
  Receive Date: 20200717
  Receipt Date: 20200717
  Transmission Date: 20201103
  Serious: Yes (Other)
  Sender: FDA-Public Use
  Company Number: US-ABBVIE-20K-163-3481154-00

PATIENT
  Sex: Male

DRUGS (1)
  1. IBRUTINIB [Suspect]
     Active Substance: IBRUTINIB
     Indication: LYMPHOCYTIC LEUKAEMIA
     Route: 065

REACTIONS (1)
  - Colonoscopy [Unknown]

NARRATIVE: CASE EVENT DATE: 2020
